APPROVED DRUG PRODUCT: NEBIVOLOL HYDROCHLORIDE
Active Ingredient: NEBIVOLOL HYDROCHLORIDE
Strength: EQ 2.5MG BASE
Dosage Form/Route: TABLET;ORAL
Application: A213349 | Product #001
Applicant: CHARTWELL RX SCIENCES LLC
Approved: Mar 31, 2022 | RLD: No | RS: No | Type: DISCN